FAERS Safety Report 4882107-8 (Version None)
Quarter: 2006Q1

REPORT INFORMATION
  Report Type: 
  Country: None (occurrence: None)
  Receive Date: 20060117
  Receipt Date: 20050801
  Transmission Date: 20060701
  Serious: Yes (Other)
  Sender: FDA-Public Use
  Company Number: US-MERCK-0508USA00849

PATIENT
  Age: 72 Year
  Sex: Male
  Weight: 105 kg

DRUGS (7)
  1. VIOXX [Suspect]
     Indication: ARTHRITIS
     Route: 048
     Dates: start: 20000101, end: 20041001
  2. ASPIRIN [Concomitant]
     Route: 065
  3. ZOCOR [Concomitant]
     Route: 048
  4. ATENOLOL [Concomitant]
     Route: 065
  5. PLAVIX [Concomitant]
     Route: 065
  6. HYDROCHLOROTHIAZIDE [Concomitant]
     Route: 065
  7. OMEPRAZOLE [Concomitant]
     Route: 065

REACTIONS (4)
  - CARDIOVASCULAR DISORDER [None]
  - DYSPNOEA [None]
  - GALLBLADDER OPERATION [None]
  - MYOCARDIAL INFARCTION [None]
